FAERS Safety Report 7818548-6 (Version None)
Quarter: 2011Q4

REPORT INFORMATION
  Report Type: 
  Country: None (occurrence: None)
  Receive Date: 20111017
  Receipt Date: 20111007
  Transmission Date: 20120403
  Serious: Yes (Hospitalization, Other)
  Sender: FDA-Public Use
  Company Number: US-ASTRAZENECA-2011SE60752

PATIENT
  Age: 56 Year
  Sex: Female
  Weight: 92.5 kg

DRUGS (10)
  1. VALIUM [Concomitant]
     Indication: PANIC ATTACK
  2. EFFEXOR [Concomitant]
  3. REMERON [Concomitant]
  4. SEROQUEL [Suspect]
     Indication: ANXIETY
     Dosage: STARTED ON LOW DOSE AS ONE A DAY AND WENT UP TO 4 PILLS A DAY
     Route: 048
     Dates: start: 20080101
  5. XANAX [Suspect]
     Route: 065
  6. SEROQUEL [Suspect]
     Indication: DEPRESSION
     Dosage: STARTED ON LOW DOSE AS ONE A DAY AND WENT UP TO 4 PILLS A DAY
     Route: 048
     Dates: start: 20080101
  7. XANAX [Suspect]
     Route: 065
  8. GABAPENTIN [Suspect]
     Indication: NEURALGIA
     Route: 065
  9. PAXIL [Suspect]
     Route: 065
  10. ANTIMIGRAINE PATCH [Concomitant]
     Indication: MIGRAINE
     Route: 065

REACTIONS (13)
  - AKATHISIA [None]
  - BALANCE DISORDER [None]
  - OSTEOARTHRITIS [None]
  - TREMOR [None]
  - FIBROMYALGIA [None]
  - ANXIETY [None]
  - GAIT DISTURBANCE [None]
  - SEDATION [None]
  - DRUG INEFFECTIVE [None]
  - SUICIDAL IDEATION [None]
  - WEIGHT INCREASED [None]
  - FALL [None]
  - SPEECH DISORDER [None]
